FAERS Safety Report 6616360-7 (Version None)
Quarter: 2010Q1

REPORT INFORMATION
  Report Type: 
  Country: None (occurrence: None)
  Receive Date: 20100305
  Receipt Date: 20100225
  Transmission Date: 20100710
  Serious: Yes (Other)
  Sender: FDA-Public Use
  Company Number: FR-JNJFOC-20100300172

PATIENT
  Age: 18 Year
  Sex: Male

DRUGS (1)
  1. CONCERTA [Suspect]
     Indication: FRONTOTEMPORAL DEMENTIA
     Route: 048

REACTIONS (3)
  - ARRHYTHMIA [None]
  - BRUGADA SYNDROME [None]
  - OFF LABEL USE [None]
